FAERS Safety Report 10146436 (Version 2)
Quarter: 2014Q2

REPORT INFORMATION
  Report Type: Spontaneous
  Country: ZA (occurrence: ZA)
  Receive Date: 20140501
  Receipt Date: 20140515
  Transmission Date: 20141212
  Serious: Yes (Life-Threatening)
  Sender: FDA-Public Use
  Company Number: ZA-PFIZER INC-2014118664

PATIENT
  Age: 72 Year
  Sex: Female

DRUGS (2)
  1. ATORVASTATIN UNICORN [Suspect]
     Indication: BLOOD CHOLESTEROL INCREASED
     Dosage: 10 MG, UNK
     Route: 048
     Dates: start: 20140330, end: 20140330
  2. PREXUM [Concomitant]
     Dosage: 10 MG, 1X/DAY

REACTIONS (3)
  - Chest discomfort [Recovered/Resolved]
  - Palpitations [Recovered/Resolved]
  - Throat tightness [Recovered/Resolved]
